FAERS Safety Report 7232103-0 (Version None)
Quarter: 2011Q1

REPORT INFORMATION
  Report Type: 
  Country: None (occurrence: None)
  Receive Date: 20110119
  Receipt Date: 20110114
  Transmission Date: 20110831
  Serious: Yes (Other)
  Sender: FDA-Public Use
  Company Number: DE-SHIRE-SPV1-2010-02217

PATIENT
  Sex: Male

DRUGS (1)
  1. MEZAVANT [Suspect]
     Indication: COLITIS
     Dosage: 1200 MG, 2X/DAY:BID
     Route: 048
     Dates: start: 20101122, end: 20101210

REACTIONS (1)
  - VITREOUS HAEMORRHAGE [None]
